FAERS Safety Report 16398691 (Version 4)
Quarter: 2019Q3

REPORT INFORMATION
  Report Type: Spontaneous
  Country: US (occurrence: US)
  Receive Date: 20190606
  Receipt Date: 20190821
  Transmission Date: 20191004
  Serious: No
  Sender: FDA-Public Use
  Company Number: US-PFIZER INC-2019222873

PATIENT
  Age: 71 Year
  Sex: Female

DRUGS (1)
  1. DILANTIN [Suspect]
     Active Substance: PHENYTOIN
     Indication: EPILEPSY
     Dosage: 100 MG, THREE TIMES A DAY (QUANTITY FOR 90 DAYS: 270)
     Route: 048

REACTIONS (3)
  - Osteoporosis [Unknown]
  - Mobility decreased [Unknown]
  - Osteoarthritis [Unknown]
